FAERS Safety Report 5079629-6 (Version None)
Quarter: 2006Q3

REPORT INFORMATION
  Report Type: 
  Country: None (occurrence: None)
  Receive Date: 20060720
  Receipt Date: 20050627
  Transmission Date: 20061208
  Serious: Yes (Other)
  Sender: FDA-Public Use
  Company Number: 2005093706

PATIENT
  Age: 66 Year
  Sex: Female
  Weight: 80.2867 kg

DRUGS (4)
  1. CELEBREX [Suspect]
     Indication: OSTEOARTHRITIS
     Dosage: 200 MG (200 MG, 1 IN 1 D), ORAL
     Route: 048
  2. ATENOLOL [Concomitant]
  3. HYDROCHLOROTHIAZIDE [Concomitant]
  4. LISINOPRIL [Concomitant]

REACTIONS (3)
  - BODY HEIGHT DECREASED [None]
  - CHEST PAIN [None]
  - GASTROOESOPHAGEAL REFLUX DISEASE [None]
